FAERS Safety Report 6112769-9 (Version None)
Quarter: 2009Q1

REPORT INFORMATION
  Report Type: 
  Country: None (occurrence: None)
  Receive Date: 20090312
  Receipt Date: 20090310
  Transmission Date: 20090719
  Serious: Yes (Life-Threatening, Hospitalization, Other)
  Sender: FDA-Public Use
  Company Number: FR-BRISTOL-MYERS SQUIBB COMPANY-14181903

PATIENT
  Age: 23 Year
  Sex: Male
  Weight: 95 kg

DRUGS (12)
  1. ABILIFY [Suspect]
     Indication: PSYCHOTIC DISORDER
     Route: 048
     Dates: start: 20080501
  2. METHADONE HCL [Suspect]
     Indication: DRUG WITHDRAWAL SYNDROME
     Route: 048
     Dates: start: 20080501
  3. BENZODIAZEPINE [Suspect]
  4. ATARAX [Suspect]
     Dates: start: 20080501
  5. LYSANXIA [Suspect]
     Indication: ANXIETY
     Route: 048
     Dates: start: 20080501
  6. NOCTAMID [Suspect]
     Dates: start: 20080501
  7. ZOPICLONE [Suspect]
     Dates: start: 20080501
  8. ANAFRANIL [Suspect]
     Dates: start: 20080501
  9. TRINITRIN [Suspect]
     Dates: start: 20080501
  10. ALPRAZOLAM [Suspect]
  11. SUBUTEX [Concomitant]
  12. XANAX [Concomitant]

REACTIONS (5)
  - ABNORMAL BEHAVIOUR [None]
  - COMA [None]
  - DRUG TOXICITY [None]
  - RESPIRATORY FAILURE [None]
  - SUICIDE ATTEMPT [None]
